FAERS Safety Report 6716243-8 (Version None)
Quarter: 2010Q2

REPORT INFORMATION
  Report Type: 
  Country: None (occurrence: None)
  Receive Date: 20100506
  Receipt Date: 20100506
  Transmission Date: 20101027
  Serious: Yes (Hospitalization)
  Sender: FDA-Public Use
  Company Number: None

PATIENT
  Sex: Female
  Weight: 69.4003 kg

DRUGS (7)
  1. LEVAQUIN [Suspect]
     Indication: LYMPHADENOPATHY
     Dosage: 500 MG QD PO
     Route: 048
     Dates: start: 20100420, end: 20100429
  2. LEVAQUIN [Suspect]
     Indication: SINUSITIS
     Dosage: 500 MG QD PO
     Route: 048
     Dates: start: 20100420, end: 20100429
  3. TOPROL-XL [Concomitant]
  4. PRILOSEC [Concomitant]
  5. CENTRUM CARDIO [Concomitant]
  6. CALTRATE D [Concomitant]
  7. BIOTIN [Concomitant]

REACTIONS (4)
  - ATRIAL FIBRILLATION [None]
  - BLOOD PRESSURE DECREASED [None]
  - DIZZINESS [None]
  - NAUSEA [None]
